FAERS Safety Report 18599573 (Version 1)
Quarter: 2020Q4

REPORT INFORMATION
  Report Type: Other
  Country: IN (occurrence: IN)
  Receive Date: 20201210
  Receipt Date: 20201210
  Transmission Date: 20210114
  Serious: Yes (Other)
  Sender: FDA-Public Use
  Company Number: IN-NUVO PHARMACEUTICALS INC-2101817

PATIENT
  Age: 62 Year
  Sex: Male

DRUGS (2)
  1. LOSARTAN. [Concomitant]
     Active Substance: LOSARTAN
     Route: 065
  2. NAPROXEN. [Suspect]
     Active Substance: NAPROXEN
     Indication: MIGRAINE
     Route: 065

REACTIONS (2)
  - Renal cortical necrosis [Unknown]
  - Tubulointerstitial nephritis [Unknown]
